FAERS Safety Report 7392591-6 (Version None)
Quarter: 2011Q2

REPORT INFORMATION
  Report Type: 
  Country: None (occurrence: None)
  Receive Date: 20110404
  Receipt Date: 20110322
  Transmission Date: 20111010
  Serious: Yes (Hospitalization)
  Sender: FDA-Public Use
  Company Number: US-CELGENEUS-163-21880-11032680

PATIENT
  Age: 83 Year
  Sex: Female
  Weight: 82 kg

DRUGS (6)
  1. REVLIMID [Suspect]
     Indication: MULTIPLE MYELOMA
     Dosage: 25 MILLIGRAM
     Route: 048
     Dates: start: 20110207, end: 20110220
  2. DEXAMETHASONE [Suspect]
     Indication: MULTIPLE MYELOMA
     Dosage: 20 MILLIGRAM
     Route: 048
     Dates: start: 20110207, end: 20110218
  3. VELCADE [Suspect]
     Indication: MULTIPLE MYELOMA
     Dosage: 1.3 MILLIGRAM/SQ. METER
     Route: 040
     Dates: start: 20110207, end: 20110217
  4. WARFARIN SODIUM [Concomitant]
     Route: 065
  5. ASPIRIN [Concomitant]
     Route: 065
  6. LEVAQUIN [Concomitant]
     Indication: COUGH
     Route: 048
     Dates: start: 20110201

REACTIONS (8)
  - DYSPNOEA [None]
  - BRONCHITIS [None]
  - INTERNATIONAL NORMALISED RATIO INCREASED [None]
  - LEFT VENTRICULAR HYPERTROPHY [None]
  - RENAL FAILURE ACUTE [None]
  - ANKLE FRACTURE [None]
  - ATRIAL FIBRILLATION [None]
  - ATRIOVENTRICULAR BLOCK COMPLETE [None]
